FAERS Safety Report 24395299 (Version 1)
Quarter: 2024Q4

REPORT INFORMATION
  Report Type: Spontaneous
  Country: CA (occurrence: CA)
  Receive Date: 20241004
  Receipt Date: 20241004
  Transmission Date: 20250115
  Serious: Yes (Other)
  Sender: REGENERON
  Company Number: CA-REGENERON PHARMACEUTICALS, INC.-2024-132123

PATIENT
  Age: 62 Year
  Sex: Female

DRUGS (1)
  1. LIBTAYO [Suspect]
     Active Substance: CEMIPLIMAB-RWLC
     Indication: Squamous cell carcinoma
     Dosage: 350 MG, Q3W
     Route: 042
     Dates: start: 202001

REACTIONS (8)
  - Ulcerative keratitis [Unknown]
  - Skin disorder [Unknown]
  - Madarosis [Not Recovered/Not Resolved]
  - Corneal diameter increased [Unknown]
  - Skin atrophy [Unknown]
  - Corneal scar [Unknown]
  - Eyelid thickening [Unknown]
  - Madarosis [Not Recovered/Not Resolved]
